FAERS Safety Report 7704505-7 (Version None)
Quarter: 2011Q3

REPORT INFORMATION
  Report Type: 
  Country: None (occurrence: None)
  Receive Date: 20110823
  Receipt Date: 20110816
  Transmission Date: 20111222
  Serious: Yes (Hospitalization)
  Sender: FDA-Public Use
  Company Number: KR-ELI_LILLY_AND_COMPANY-KR201107007258

PATIENT
  Age: 72 Year
  Sex: Female

DRUGS (2)
  1. HUMALOG MIX 75/25 [Suspect]
     Indication: TYPE 2 DIABETES MELLITUS
     Dosage: 46 U, EACH MORNING
     Route: 058
     Dates: start: 20110601
  2. HUMALOG MIX 75/25 [Suspect]
     Dosage: 30 U, EACH EVENING
     Route: 058
     Dates: start: 20110601

REACTIONS (5)
  - DYSPEPSIA [None]
  - GASTROINTESTINAL INFLAMMATION [None]
  - ABDOMINAL PAIN [None]
  - THROMBOSIS [None]
  - OEDEMA PERIPHERAL [None]
